FAERS Safety Report 22139173 (Version 1)
Quarter: 2023Q1

REPORT INFORMATION
  Report Type: Report from Study
  Country: US (occurrence: US)
  Receive Date: 20230327
  Receipt Date: 20230327
  Transmission Date: 20230418
  Serious: Yes (Other)
  Sender: FDA-Public Use
  Company Number: US-ABBVIE-4705284

PATIENT
  Age: 64 Year
  Sex: Male

DRUGS (1)
  1. VENETOCLAX [Suspect]
     Active Substance: VENETOCLAX
     Indication: Product used for unknown indication
     Route: 048

REACTIONS (5)
  - Lyme disease [Unknown]
  - Hepatitis B virus test positive [Unknown]
  - Acute myeloid leukaemia [Unknown]
  - Hepatitis C virus test positive [Unknown]
  - Arthritis [Unknown]

NARRATIVE: CASE EVENT DATE: 20180101
